FAERS Safety Report 6536343-5 (Version None)
Quarter: 2010Q1

REPORT INFORMATION
  Report Type: 
  Country: None (occurrence: None)
  Receive Date: 20100113
  Receipt Date: 20091204
  Transmission Date: 20100710
  Serious: No
  Sender: FDA-Public Use
  Company Number: US-ALLERGAN-0916816US

PATIENT
  Age: 63 Year
  Sex: Female

DRUGS (3)
  1. LATISSE [Suspect]
     Indication: GROWTH OF EYELASHES
     Dosage: 1 GTT, QHS
     Route: 061
     Dates: start: 20091201
  2. PRAVACHOL [Concomitant]
  3. DAILY VITAMINS [Concomitant]

REACTIONS (2)
  - DYSGEUSIA [None]
  - INCORRECT DOSE ADMINISTERED [None]
